FAERS Safety Report 4546032-4 (Version None)
Quarter: 2005Q1

REPORT INFORMATION
  Report Type: 
  Country: None (occurrence: None)
  Receive Date: 20050103
  Receipt Date: 20041215
  Transmission Date: 20050727
  Serious: Yes (Other)
  Sender: FDA-Public Use
  Company Number: USA040875367

PATIENT
  Age: 13 Year
  Sex: Male
  Weight: 59 kg

DRUGS (1)
  1. STRATTERA [Suspect]
     Indication: ATTENTION DEFICIT/HYPERACTIVITY DISORDER
     Dosage: 78 MG DAY
     Dates: start: 20030501, end: 20031201

REACTIONS (2)
  - BIPOLAR I DISORDER [None]
  - MANIA [None]
